FAERS Safety Report 7971446-X (Version None)
Quarter: 2011Q4

REPORT INFORMATION
  Report Type: 
  Country: None (occurrence: None)
  Receive Date: 20111212
  Receipt Date: 20111206
  Transmission Date: 20120403
  Serious: No
  Sender: FDA-Public Use
  Company Number: US-PFIZER INC-2011298428

PATIENT
  Sex: Male
  Weight: 29.478 kg

DRUGS (1)
  1. IBUPROFEN (ADVIL) [Suspect]
     Indication: TOOTHACHE
     Dosage: 2 TABLETS OF UNK DOSE AT AN UNK FREQUENCY
     Route: 048
     Dates: start: 20111206

REACTIONS (1)
  - NAUSEA [None]
